FAERS Safety Report 5078620-3 (Version None)
Quarter: 2006Q3

REPORT INFORMATION
  Report Type: 
  Country: None (occurrence: None)
  Receive Date: 20060808
  Receipt Date: 20060717
  Transmission Date: 20061208
  Serious: Yes (Hospitalization)
  Sender: FDA-Public Use
  Company Number: AT200606004218

PATIENT
  Age: 82 Year
  Sex: Female

DRUGS (11)
  1. FORTEO [Suspect]
     Indication: OSTEOPOROSIS
     Dosage: 20 UG, DAILY (1/D), SUBCUTANEOUS
     Route: 058
     Dates: start: 20060201
  2. FORTEO [Concomitant]
  3. METHYLPREDNISOLONE [Concomitant]
  4. DURAGESIC-100 [Concomitant]
  5. MADOPAR (BENSERAZIDE HYDROCHLORIDE, LEVODOPA) [Concomitant]
  6. GLADEM (SERTRALINE HYDROCHLORIDE) [Concomitant]
  7. LASIX (FUROSEMIDE, FUROSEMIDE SODIUM) [Concomitant]
  8. DILTIAZEM HYDROCHLORIDE [Concomitant]
  9. AGAFFIN (SODIUM PICOSULFATE) [Concomitant]
  10. LORAZEPAM [Concomitant]
  11. CITALOPRAM HYDROBROMIDE [Concomitant]

REACTIONS (1)
  - LARGE INTESTINE PERFORATION [None]
